FAERS Safety Report 16009408 (Version 1)
Quarter: 2019Q1

REPORT INFORMATION
  Report Type: Spontaneous
  Country: US (occurrence: US)
  Receive Date: 20190225
  Receipt Date: 20190225
  Transmission Date: 20190418
  Serious: Yes (Death, Hospitalization)
  Sender: FDA-Public Use
  Company Number: PHEH2019US007990

PATIENT
  Age: 51 Year
  Sex: Female
  Weight: 54.4 kg

DRUGS (13)
  1. DOXORUBICIN [Suspect]
     Active Substance: DOXORUBICIN
     Indication: SOFT TISSUE SARCOMA
     Dosage: 25 MG/M2, CYCLIC
     Route: 042
     Dates: start: 20181126
  2. IFOSFAMIDE. [Suspect]
     Active Substance: IFOSFAMIDE
     Indication: SOFT TISSUE SARCOMA
     Dosage: 2500 MG/M2, CYCLIC
     Route: 042
     Dates: start: 20181126
  3. MESNA. [Suspect]
     Active Substance: MESNA
     Indication: SOFT TISSUE SARCOMA
     Dosage: 1500 MG/M2, QD
     Route: 042
     Dates: start: 20181126
  4. ZOLPIDEM [Concomitant]
     Active Substance: ZOLPIDEM\ZOLPIDEM TARTRATE
     Indication: INSOMNIA
     Dosage: UNK
     Route: 065
     Dates: start: 2015
  5. BUPROPION. [Concomitant]
     Active Substance: BUPROPION
     Indication: DEPRESSION
     Dosage: UNK
     Route: 065
     Dates: start: 201710
  6. LEVOTHYROXINE. [Concomitant]
     Active Substance: LEVOTHYROXINE
     Indication: HYPOTHYROIDISM
     Dosage: UNK
     Route: 065
     Dates: start: 2010
  7. GABAPENTIN. [Concomitant]
     Active Substance: GABAPENTIN
     Indication: FIBROMYALGIA
     Dosage: UNK
     Route: 065
     Dates: start: 201709
  8. FENTANYL. [Concomitant]
     Active Substance: FENTANYL
     Indication: PAIN IN EXTREMITY
     Dosage: UNK
     Route: 065
     Dates: start: 201807
  9. OLARATUMAB [Suspect]
     Active Substance: OLARATUMAB
     Indication: SOFT TISSUE SARCOMA
     Dosage: 15 MG/KG, CYCLIC
     Route: 042
     Dates: start: 20181126
  10. LANSOPRAZOLE. [Concomitant]
     Active Substance: LANSOPRAZOLE
     Indication: GASTRITIS
     Dosage: UNK
     Route: 065
     Dates: start: 2005
  11. LEVOFLOXACIN. [Suspect]
     Active Substance: LEVOFLOXACIN
     Indication: PRODUCT USED FOR UNKNOWN INDICATION
     Dosage: UNK
     Route: 042
  12. ENOXAPARIN [Concomitant]
     Active Substance: ENOXAPARIN
     Indication: DEEP VEIN THROMBOSIS
     Dosage: UNK
     Route: 065
     Dates: start: 20171026
  13. OXYCODONE [Concomitant]
     Active Substance: OXYCODONE
     Indication: PAIN IN EXTREMITY
     Dosage: UNK
     Route: 065
     Dates: start: 201710

REACTIONS (9)
  - Pyrexia [Fatal]
  - Fall [Unknown]
  - Pneumonia [Fatal]
  - Unresponsive to stimuli [Unknown]
  - Lethargy [Unknown]
  - Diarrhoea [Unknown]
  - Head injury [Unknown]
  - Vomiting [Unknown]
  - Febrile neutropenia [Unknown]

NARRATIVE: CASE EVENT DATE: 20181227
